FAERS Safety Report 18731028 (Version 1)
Quarter: 2021Q1

REPORT INFORMATION
  Report Type: Spontaneous
  Country: NL (occurrence: NL)
  Receive Date: 20210112
  Receipt Date: 20210112
  Transmission Date: 20210419
  Serious: Yes (Other)
  Sender: FDA-Public Use
  Company Number: NL-MYLANLABS-2020M1096790

PATIENT
  Age: 51 Year
  Sex: Female
  Weight: 76 kg

DRUGS (4)
  1. VALACICLOVIR [Suspect]
     Active Substance: VALACYCLOVIR HYDROCHLORIDE
     Indication: PROPHYLAXIS
     Dosage: MAINTENANCE DOSE 1X PER DAY
     Dates: start: 20200917, end: 20201012
  2. IBUPROFEN. [Suspect]
     Active Substance: IBUPROFEN
     Indication: PAIN
     Dosage: FEW DAYS 6 HOURS 600 MG DUE TO REMOVAL WISDOM TOOTH IN THE LOWER JAW
     Dates: start: 20200917
  3. COLECALCIFEROL [Concomitant]
     Active Substance: CHOLECALCIFEROL
     Dosage: 1X DAILY 1 TABLET 10 PG (CANNOT FIND SYMBOL)
  4. LEVONORGESTREL. [Concomitant]
     Active Substance: LEVONORGESTREL
     Dosage: TABLET, 1,5 MG (MILLIGRAM)

REACTIONS (2)
  - Somnolence [Recovered/Resolved]
  - Loss of consciousness [Recovered/Resolved]

NARRATIVE: CASE EVENT DATE: 20200930
